FAERS Safety Report 5234743-7 (Version None)
Quarter: 2007Q1

REPORT INFORMATION
  Report Type: 
  Country: None (occurrence: None)
  Receive Date: 20070209
  Receipt Date: 20070130
  Transmission Date: 20070707
  Serious: Yes (Death, Congenital Anomaly)
  Sender: FDA-Public Use
  Company Number: NL-PFIZER INC-2007007797

PATIENT

DRUGS (2)
  1. FLUCONAZOLE [Suspect]
     Indication: VAGINAL CANDIDIASIS
     Route: 048
     Dates: start: 20060801, end: 20060801
  2. ALL OTHER THERAPEUTIC PRODUCTS [Concomitant]

REACTIONS (2)
  - ANENCEPHALY [None]
  - DEATH [None]
